FAERS Safety Report 22000202 (Version 1)
Quarter: 2023Q1

REPORT INFORMATION
  Report Type: Spontaneous
  Country: JP (occurrence: JP)
  Receive Date: 20230216
  Receipt Date: 20230216
  Transmission Date: 20230417
  Serious: Yes (Other)
  Sender: FDA-Public Use
  Company Number: JP-PFIZER INC-202300025385

PATIENT
  Age: 76 Year
  Sex: Female

DRUGS (4)
  1. HALCION [Suspect]
     Active Substance: TRIAZOLAM
     Dosage: 1 DF
     Route: 048
  2. SOLANAX [Concomitant]
     Active Substance: ALPRAZOLAM
     Dosage: CUTTING IT LITTLE BY LITTLE
     Route: 048
  3. ZOLPIDEM TARTRATE [Concomitant]
     Active Substance: ZOLPIDEM TARTRATE
     Route: 048
  4. DAYVIGO [Concomitant]
     Active Substance: LEMBOREXANT

REACTIONS (18)
  - Memory impairment [Unknown]
  - Incorrect product administration duration [Unknown]
  - Drug dependence [Unknown]
  - Gait disturbance [Unknown]
  - Somnolence [Unknown]
  - Panic reaction [Unknown]
  - Drug tolerance [Unknown]
  - Asthenia [Unknown]
  - Therapeutic response decreased [Unknown]
  - Withdrawal syndrome [Unknown]
  - Dizziness [Unknown]
  - Fall [Unknown]
  - Cerebral disorder [Unknown]
  - Physical deconditioning [Unknown]
  - Dyschezia [Unknown]
  - Abulia [Unknown]
  - Product dose omission in error [Unknown]
  - Panic disorder [Unknown]

NARRATIVE: CASE EVENT DATE: 20230112
